FAERS Safety Report 5949718-X (Version None)
Quarter: 2008Q4

REPORT INFORMATION
  Report Type: 
  Country: None (occurrence: None)
  Receive Date: 20081112
  Receipt Date: 20081031
  Transmission Date: 20090506
  Serious: Yes (Hospitalization)
  Sender: FDA-Public Use
  Company Number: JP-JNJFOC-20080306865

PATIENT
  Sex: Male
  Weight: 59 kg

DRUGS (11)
  1. REMICADE [Suspect]
     Route: 042
  2. REMICADE [Suspect]
     Route: 042
  3. REMICADE [Suspect]
     Indication: CROHN'S DISEASE
     Route: 042
  4. PENTASA [Concomitant]
     Route: 048
  5. PENTASA [Concomitant]
     Route: 048
  6. PREDNISOLONE [Concomitant]
     Route: 048
  7. PREDNISOLONE [Concomitant]
     Route: 048
  8. ANTIBIOTIC [Concomitant]
  9. ELENTAL [Concomitant]
  10. GASTER D [Concomitant]
     Route: 048
  11. BIOFERMIN [Concomitant]
     Route: 048

REACTIONS (3)
  - CROHN'S DISEASE [None]
  - ENTEROCOLITIS FUNGAL [None]
  - INTESTINAL OBSTRUCTION [None]
